FAERS Safety Report 15516259 (Version 2)
Quarter: 2020Q2

REPORT INFORMATION
  Report Type: Report from Study
  Country: US (occurrence: US)
  Receive Date: 20181017
  Receipt Date: 20200428
  Transmission Date: 20200713
  Serious: Yes (Hospitalization, Other)
  Sender: FDA-Public Use
  Company Number: US-BRISTOL-MYERS SQUIBB COMPANY-BMS-2018-095212

PATIENT
  Age: 70 Year
  Sex: Male
  Weight: 103.4 kg

DRUGS (1)
  1. APIXABAN [Suspect]
     Active Substance: APIXABAN
     Indication: LOWER LIMB FRACTURE
     Dosage: 2.5 MG, BID
     Route: 048
     Dates: start: 2016

REACTIONS (2)
  - Cerebrovascular accident [Unknown]
  - Intentional product use issue [Unknown]

NARRATIVE: CASE EVENT DATE: 20181002
